FAERS Safety Report 6206557-2 (Version None)
Quarter: 2009Q2

REPORT INFORMATION
  Report Type: 
  Country: None (occurrence: None)
  Receive Date: 20090527
  Receipt Date: 20090527
  Transmission Date: 20091009
  Serious: Yes (Other)
  Sender: FDA-Public Use
  Company Number: None

PATIENT
  Age: 62 Year
  Sex: Male
  Weight: 76.0229 kg

DRUGS (7)
  1. PLAVIX [Suspect]
     Indication: INVESTIGATION
     Dosage: 75 MG ONCE DAILY PO
     Route: 048
     Dates: start: 20090430, end: 20090513
  2. ESCITASLOPRAM [Concomitant]
  3. ASPIRIN [Concomitant]
  4. NITROGLYCERIN [Concomitant]
  5. METOPROLOL SUCCINATE [Concomitant]
  6. SIMVASTATIN [Concomitant]
  7. MULTIVITAMIN WITH FLORIDE [Concomitant]

REACTIONS (3)
  - ABNORMAL DREAMS [None]
  - FATIGUE [None]
  - NIGHTMARE [None]
